FAERS Safety Report 6680976-2 (Version None)
Quarter: 2010Q2

REPORT INFORMATION
  Report Type: 
  Country: None (occurrence: None)
  Receive Date: 20100414
  Receipt Date: 20100330
  Transmission Date: 20101027
  Serious: Yes (Death, Hospitalization)
  Sender: FDA-Public Use
  Company Number: GB-BAUSCH-2010BL001749

PATIENT
  Age: 46 Year
  Sex: Male

DRUGS (11)
  1. DEXAMETHASONE [Suspect]
     Indication: FATIGUE
  2. DEXAMETHASONE [Suspect]
  3. CARBOPLATIN [Suspect]
     Indication: METASTATIC MALIGNANT MELANOMA
  4. MOVICOL [Suspect]
     Indication: CONSTIPATION
  5. NAPROXEN [Suspect]
     Indication: ANALGESIC THERAPY
  6. DIAMORPHINE [Concomitant]
     Indication: ANALGESIC THERAPY
     Route: 058
  7. HYDROCORTISONE [Concomitant]
     Indication: DRUG USE FOR UNKNOWN INDICATION
  8. KETAMINE [Concomitant]
     Indication: ANALGESIC THERAPY
  9. MIDAZOLAM HCL [Concomitant]
     Indication: ANALGESIC THERAPY
     Route: 058
  10. MORPHINE SULFATE [Concomitant]
     Indication: ANALGESIC THERAPY
  11. WARFARIN [Concomitant]
     Indication: PULMONARY EMBOLISM

REACTIONS (3)
  - HYPERKALAEMIA [None]
  - HYPONATRAEMIA [None]
  - TUMOUR HAEMORRHAGE [None]
